FAERS Safety Report 13372917 (Version 4)
Quarter: 2018Q4

REPORT INFORMATION
  Report Type: Spontaneous
  Country: IT (occurrence: IT)
  Receive Date: 20170327
  Receipt Date: 20181128
  Transmission Date: 20190204
  Serious: Yes (Death)
  Sender: FDA-Public Use
  Company Number: IT-ROCHE-1911882

PATIENT
  Age: 77 Year
  Sex: Female
  Weight: 100 kg

DRUGS (3)
  1. ACTILYSE [Suspect]
     Active Substance: ALTEPLASE
     Indication: ISCHAEMIC STROKE
     Dosage: BOLUS 9 MG, THE REMAINING IN 1 HOUR 81 MG, TOTAL 90 MG (PATIENT 100 KG OF WEIGTH)
     Route: 042
     Dates: start: 20160428, end: 20160428
  2. CARDIOASPIRIN [Concomitant]
     Active Substance: ASPIRIN
     Indication: PRODUCT USED FOR UNKNOWN INDICATION
     Route: 048
     Dates: start: 20160427, end: 20160428
  3. FUROSEMIDE. [Concomitant]
     Active Substance: FUROSEMIDE
     Indication: PRODUCT USED FOR UNKNOWN INDICATION
     Route: 048
     Dates: start: 20160428, end: 20160506

REACTIONS (4)
  - Pneumonitis [Fatal]
  - Cerebral haemorrhage [Fatal]
  - Ischaemic stroke [Fatal]
  - Haemorrhage [Fatal]

NARRATIVE: CASE EVENT DATE: 20160428
